FAERS Safety Report 5339043-2 (Version None)
Quarter: 2007Q2

REPORT INFORMATION
  Report Type: 
  Country: None (occurrence: None)
  Receive Date: 20070530
  Receipt Date: 20070518
  Transmission Date: 20071010
  Serious: Yes (Other)
  Sender: FDA-Public Use
  Company Number: US-PFIZER INC-2007036523

PATIENT
  Sex: Female
  Weight: 66.818 kg

DRUGS (7)
  1. CHANTIX [Suspect]
     Indication: SMOKING CESSATION THERAPY
  2. THEOPHYLLINE [Concomitant]
  3. ADVAIR DISKUS 100/50 [Concomitant]
  4. NEXIUM [Concomitant]
     Dosage: FREQ:DAILY
  5. MOTRIN [Concomitant]
  6. MOBIC [Concomitant]
     Indication: ARTHRITIS
     Dosage: FREQ:DAILY
  7. ALBUTEROL [Concomitant]
     Route: 055

REACTIONS (5)
  - BRONCHIAL DISORDER [None]
  - BRONCHITIS [None]
  - DYSPNOEA [None]
  - SYNCOPE [None]
  - TREMOR [None]
